FAERS Safety Report 24089758 (Version 2)
Quarter: 2025Q3

REPORT INFORMATION
  Report Type: Spontaneous
  Country: CN (occurrence: CN)
  Receive Date: 20240715
  Receipt Date: 20250703
  Transmission Date: 20251021
  Serious: Yes (Death, Hospitalization, Other)
  Sender: Steriscience PTE
  Company Number: CN-STERISCIENCE B.V.-2024-ST-001011

PATIENT
  Age: 10 Year
  Sex: Male

DRUGS (31)
  1. METOPROLOL [Suspect]
     Active Substance: METOPROLOL
     Indication: Pulmonary hypertension
     Route: 065
  2. METOPROLOL [Suspect]
     Active Substance: METOPROLOL
     Indication: Cardiac failure acute
  3. METOPROLOL [Suspect]
     Active Substance: METOPROLOL
     Indication: Hypertension
  4. BOSENTAN [Suspect]
     Active Substance: BOSENTAN
     Indication: Pulmonary hypertension
     Route: 065
  5. BOSENTAN [Suspect]
     Active Substance: BOSENTAN
     Indication: Cardiac failure acute
  6. BOSENTAN [Suspect]
     Active Substance: BOSENTAN
     Indication: Hypertension
  7. CAPTOPRIL [Suspect]
     Active Substance: CAPTOPRIL
     Indication: Pulmonary hypertension
     Route: 065
  8. CAPTOPRIL [Suspect]
     Active Substance: CAPTOPRIL
     Indication: Cardiac failure acute
  9. CAPTOPRIL [Suspect]
     Active Substance: CAPTOPRIL
     Indication: Hypertension
  10. MILRINONE [Suspect]
     Active Substance: MILRINONE
     Indication: Pulmonary hypertension
     Route: 065
  11. MILRINONE [Suspect]
     Active Substance: MILRINONE
     Indication: Cardiac failure acute
  12. MILRINONE [Suspect]
     Active Substance: MILRINONE
     Indication: Hypertension
  13. METHYLPREDNISOLONE [Suspect]
     Active Substance: METHYLPREDNISOLONE
     Indication: Pulmonary hypertension
     Route: 042
  14. METHYLPREDNISOLONE [Suspect]
     Active Substance: METHYLPREDNISOLONE
     Indication: Cardiac failure acute
  15. METHYLPREDNISOLONE [Suspect]
     Active Substance: METHYLPREDNISOLONE
     Indication: Hypertension
  16. PREDNISONE [Suspect]
     Active Substance: PREDNISONE
     Indication: Pulmonary hypertension
     Route: 048
  17. PREDNISONE [Suspect]
     Active Substance: PREDNISONE
     Indication: Cardiac failure acute
  18. PREDNISONE [Suspect]
     Active Substance: PREDNISONE
     Indication: Hypertension
  19. HEPARIN [Suspect]
     Active Substance: HEPARIN SODIUM
     Indication: Pulmonary hypertension
  20. HEPARIN [Suspect]
     Active Substance: HEPARIN SODIUM
     Indication: Cardiac failure acute
  21. HEPARIN [Suspect]
     Active Substance: HEPARIN SODIUM
     Indication: Hypertension
  22. TOCILIZUMAB [Suspect]
     Active Substance: TOCILIZUMAB
     Indication: Pulmonary hypertension
     Route: 042
  23. TOCILIZUMAB [Suspect]
     Active Substance: TOCILIZUMAB
     Indication: Cardiac failure acute
     Route: 065
  24. TOCILIZUMAB [Suspect]
     Active Substance: TOCILIZUMAB
     Indication: Hypertension
     Route: 065
  25. INFLIXIMAB [Suspect]
     Active Substance: INFLIXIMAB
     Indication: Pulmonary hypertension
     Route: 042
  26. INFLIXIMAB [Suspect]
     Active Substance: INFLIXIMAB
     Indication: Cardiac failure acute
  27. INFLIXIMAB [Suspect]
     Active Substance: INFLIXIMAB
     Indication: Hypertension
  28. UROKINASE [Suspect]
     Active Substance: UROKINASE
     Indication: Pulmonary hypertension
     Route: 065
  29. UROKINASE [Suspect]
     Active Substance: UROKINASE
     Indication: Cardiac failure acute
  30. UROKINASE [Suspect]
     Active Substance: UROKINASE
     Indication: Hypertension
  31. DIAZEPAM [Concomitant]
     Active Substance: DIAZEPAM
     Indication: Seizure
     Route: 065

REACTIONS (2)
  - Condition aggravated [Fatal]
  - Drug ineffective for unapproved indication [Fatal]
